FAERS Safety Report 9482936 (Version 1)
Quarter: 2013Q3

REPORT INFORMATION
  Report Type: Spontaneous
  Country: US (occurrence: US)
  Receive Date: 20130828
  Receipt Date: 20130828
  Transmission Date: 20140515
  Serious: Yes (Disabling)
  Sender: FDA-Public Use
  Company Number: US-MUTUAL PHARMACEUTICAL COMPANY, INC.-MTCD20130174

PATIENT
  Sex: Female

DRUGS (6)
  1. METOCLOPRAMIDE [Suspect]
     Indication: DIABETIC GASTROPARESIS
     Route: 048
     Dates: start: 200411, end: 200811
  2. METOCLOPRAMIDE [Suspect]
     Indication: PROPHYLAXIS
  3. METOCLOPRAMIDE [Suspect]
     Indication: POSTOPERATIVE CARE
  4. REGLAN [Suspect]
     Indication: DIABETIC GASTROPARESIS
     Route: 048
     Dates: start: 200411, end: 200811
  5. REGLAN [Suspect]
     Indication: PROPHYLAXIS
  6. REGLAN [Suspect]
     Indication: POSTOPERATIVE CARE

REACTIONS (3)
  - Parkinson^s disease [None]
  - Extrapyramidal disorder [None]
  - Tardive dyskinesia [None]
